FAERS Safety Report 14923033 (Version 1)
Quarter: 2018Q2

REPORT INFORMATION
  Report Type: Spontaneous
  Country: US (occurrence: US)
  Receive Date: 20180503
  Receipt Date: 20180503
  Transmission Date: 20180711
  Serious: Yes (Hospitalization)
  Sender: FDA-Public Use
  Company Number: None

PATIENT
  Age: 77 Year
  Sex: Male

DRUGS (7)
  1. ZYTIGA [Suspect]
     Active Substance: ABIRATERONE ACETATE
     Indication: PROSTATE CANCER
     Route: 048
     Dates: start: 20170628, end: 20180503
  2. ADVAIR DISKUS [Concomitant]
     Active Substance: FLUTICASONE PROPIONATE\SALMETEROL XINAFOATE
  3. DORZOLAMIDE SOL 2% [Concomitant]
  4. FLUTICASONE SPR 50MG [Concomitant]
  5. LUMIGAN SOL 0.01% [Concomitant]
  6. LUPRON DEPOT [Concomitant]
     Active Substance: LEUPROLIDE ACETATE
  7. PREDNISONE 5MG TABLETS [Concomitant]

REACTIONS (3)
  - Blood potassium decreased [None]
  - Infection [None]
  - Spinal fracture [None]

NARRATIVE: CASE EVENT DATE: 20180502
